FAERS Safety Report 10958707 (Version 2)
Quarter: 2015Q4

REPORT INFORMATION
  Report Type: Spontaneous
  Country: US (occurrence: US)
  Receive Date: 20150326
  Receipt Date: 20151118
  Transmission Date: 20160304
  Serious: Yes (Death, Hospitalization, Other)
  Sender: FDA-Public Use
  Company Number: US-TEVA-521032USA

PATIENT
  Sex: Male

DRUGS (1)
  1. CIPROFLOXACIN. [Suspect]
     Active Substance: CIPROFLOXACIN
     Indication: URINARY TRACT INFECTION
     Route: 065

REACTIONS (12)
  - Drug eruption [Unknown]
  - Anaemia [Unknown]
  - Blood count abnormal [Unknown]
  - Multi-organ failure [Unknown]
  - Blister [Unknown]
  - Adverse event [Unknown]
  - Platelet disorder [Unknown]
  - Blood disorder [Unknown]
  - Death [Fatal]
  - Blood blister [Unknown]
  - Rash erythematous [Unknown]
  - Bone marrow failure [Unknown]
